FAERS Safety Report 8906536 (Version 1)
Quarter: 2012Q4

REPORT INFORMATION
  Report Type: 
  Country: US (occurrence: US)
  Receive Date: 20121113
  Receipt Date: 20121113
  Transmission Date: 20130627
  Serious: No
  Sender: FDA-Public Use
  Company Number: US-AMGEN-USASP2012011190

PATIENT
  Sex: Female

DRUGS (1)
  1. ENBREL [Suspect]
     Indication: GRANULOMA ANNULARE
     Dosage: 50 mg, 2 times/wk
     Dates: start: 201202

REACTIONS (4)
  - Pruritus [Recovering/Resolving]
  - Injection site pruritus [Recovering/Resolving]
  - Injection site erythema [Recovering/Resolving]
  - Injection site rash [Recovering/Resolving]
